FAERS Safety Report 21948798 (Version 1)
Quarter: 2023Q1

REPORT INFORMATION
  Report Type: Spontaneous
  Country: US (occurrence: None)
  Receive Date: 20230202
  Receipt Date: 20230202
  Transmission Date: 20230418
  Serious: Yes (Hospitalization)
  Sender: FDA-Public Use
  Company Number: None

PATIENT
  Sex: Male

DRUGS (2)
  1. DEXAMETHASONE [Suspect]
     Active Substance: DEXAMETHASONE
     Indication: Colon cancer
     Dosage: 10MG EVERY 14 DAYS IV?
     Route: 042
     Dates: start: 202301
  2. IRINOTECAN HYDROCHLORIDE [Suspect]
     Active Substance: IRINOTECAN HYDROCHLORIDE
     Indication: Colon cancer
     Dosage: FREQUENCY : EVERY OTHER WEEK?
     Route: 042
     Dates: start: 202211

REACTIONS (1)
  - Urinary tract obstruction [None]
